FAERS Safety Report 8030432-4 (Version None)
Quarter: 2012Q1

REPORT INFORMATION
  Report Type: 
  Country: None (occurrence: None)
  Receive Date: 20120109
  Receipt Date: 20120109
  Transmission Date: 20120608
  Serious: Yes (Life-Threatening, Other)
  Sender: FDA-Public Use
  Company Number: None

PATIENT
  Age: 33 Year
  Sex: Female
  Weight: 45.359 kg

DRUGS (1)
  1. LEVAQUIN -GENERIC- [Suspect]
     Indication: SINUSITIS
     Dates: start: 20111221, end: 20111225

REACTIONS (11)
  - NEUROPATHY PERIPHERAL [None]
  - PYREXIA [None]
  - MUSCULOSKELETAL STIFFNESS [None]
  - DYSPHAGIA [None]
  - INSOMNIA [None]
  - ANXIETY [None]
  - DYSPNOEA [None]
  - DYSTONIA [None]
  - TINNITUS [None]
  - PRODUCT SUBSTITUTION ISSUE [None]
  - PANIC ATTACK [None]
